FAERS Safety Report 9665914 (Version 1)
Quarter: 2013Q4

REPORT INFORMATION
  Report Type: Spontaneous
  Country: None (occurrence: None)
  Receive Date: 20131101
  Receipt Date: 20131101
  Transmission Date: 20140711
  Serious: Yes (Disabling)
  Sender: FDA-Public Use
  Company Number: None

PATIENT
  Age: 88 Year
  Sex: Male
  Weight: 78.93 kg

DRUGS (1)
  1. CIPROFLOXACIN 500MGM [Suspect]
     Indication: CYSTITIS
     Dosage: 1 PILL
     Route: 048
     Dates: start: 20130705, end: 20130708

REACTIONS (4)
  - Erythema [None]
  - Muscular weakness [None]
  - Gait disturbance [None]
  - Dysstasia [None]
